FAERS Safety Report 4333204-7 (Version None)
Quarter: 2004Q2

REPORT INFORMATION
  Report Type: 
  Country: None (occurrence: None)
  Receive Date: 20040402
  Receipt Date: 20040317
  Transmission Date: 20050107
  Serious: Yes (Hospitalization)
  Sender: FDA-Public Use
  Company Number: NLWYE647017MAR04

PATIENT
  Age: 51 Year
  Sex: Male

DRUGS (2)
  1. EFFEXOR [Suspect]
     Indication: DYSTHYMIC DISORDER
     Dosage: 75 MG 1X PER 1 DAY
     Route: 048
     Dates: start: 20021113, end: 20030703
  2. CITALOPRAM HYDROBROMIDE [Concomitant]

REACTIONS (1)
  - SUBILEUS [None]
